FAERS Safety Report 5076028-8 (Version None)
Quarter: 2006Q3

REPORT INFORMATION
  Report Type: 
  Country: None (occurrence: None)
  Receive Date: 20060809
  Receipt Date: 20060802
  Transmission Date: 20061208
  Serious: Yes (Other)
  Sender: FDA-Public Use
  Company Number: NO-BOEHRINGER INGELHEIM GMBH, GERMANY-2006-DE-04066GD

PATIENT
  Sex: Female

DRUGS (5)
  1. IPRATROPIUM BROMIDE [Suspect]
     Indication: STATUS ASTHMATICUS
     Route: 055
     Dates: start: 19970101
  2. ALBUTEROL SPIROS [Suspect]
     Indication: STATUS ASTHMATICUS
     Route: 055
     Dates: start: 19970101
  3. HYDROCORTISONE TAB [Suspect]
     Indication: STATUS ASTHMATICUS
     Route: 042
     Dates: start: 19970101
  4. THEOPHYLLINE 80MG/15ML ELIXIR [Suspect]
     Indication: STATUS ASTHMATICUS
     Dosage: LOADING DOSE
     Route: 042
     Dates: start: 19970101
  5. OXYGEN [Suspect]
     Indication: STATUS ASTHMATICUS
     Route: 055
     Dates: start: 19970101

REACTIONS (7)
  - ASTHMA [None]
  - CONDITION AGGRAVATED [None]
  - CONFUSIONAL STATE [None]
  - DRUG INEFFECTIVE [None]
  - HAEMODYNAMIC INSTABILITY [None]
  - HYPERCAPNIA [None]
  - HYPOXIA [None]
